FAERS Safety Report 19674211 (Version 2)
Quarter: 2021Q4

REPORT INFORMATION
  Report Type: Spontaneous
  Country: None (occurrence: US)
  Receive Date: 20210809
  Receipt Date: 20211217
  Transmission Date: 20220303
  Serious: Yes (Other)
  Sender: FDA-Public Use
  Company Number: US-JIANGSU HENGRUI MEDICINE CO., LTD.-2114767

PATIENT
  Sex: Male

DRUGS (8)
  1. CYCLOPHOSPHAMIDE [Suspect]
     Active Substance: CYCLOPHOSPHAMIDE
     Indication: Desmoplastic small round cell tumour
  2. IRINOTECAN HYDROCHLORIDE [Suspect]
     Active Substance: IRINOTECAN HYDROCHLORIDE
  3. VINCRISTINE [Suspect]
     Active Substance: VINCRISTINE
  4. DOXORUBICIN [Suspect]
     Active Substance: DOXORUBICIN
  5. IFOSFAMIDE [Suspect]
     Active Substance: IFOSFAMIDE
  6. ETOPOSIDE [Suspect]
     Active Substance: ETOPOSIDE
  7. TEMOZOLOMIDE [Suspect]
     Active Substance: TEMOZOLOMIDE
  8. TEMSIROLIMUS [Suspect]
     Active Substance: TEMSIROLIMUS

REACTIONS (4)
  - Cytopenia [Unknown]
  - Retinal haemorrhage [Unknown]
  - Diarrhoea [Unknown]
  - Product use in unapproved indication [Unknown]
